FAERS Safety Report 12377102 (Version 1)
Quarter: 2016Q2

REPORT INFORMATION
  Report Type: Report from Study
  Country: US (occurrence: US)
  Receive Date: 20160517
  Receipt Date: 20160517
  Transmission Date: 20160815
  Serious: No
  Sender: FDA-Public Use
  Company Number: US-MALLINCKRODT-T201503624

PATIENT
  Age: 49 Year
  Sex: Female

DRUGS (1)
  1. REPOSITORY CORTICOTROPIN INJECTION [Suspect]
     Active Substance: CORTICOTROPIN
     Indication: GLOMERULONEPHRITIS MEMBRANOPROLIFERATIVE
     Dosage: 80 UNITS TWICE WKLY
     Route: 030
     Dates: start: 20150416

REACTIONS (7)
  - Incorrect product storage [Recovered/Resolved]
  - Pain in extremity [Not Recovered/Not Resolved]
  - Inflammation [Unknown]
  - Blood pressure increased [Unknown]
  - Gastroenteritis viral [Not Recovered/Not Resolved]
  - Arthritis [Recovered/Resolved]
  - Gout [Unknown]

NARRATIVE: CASE EVENT DATE: 201601
